FAERS Safety Report 9995285 (Version 2)
Quarter: 2014Q2

REPORT INFORMATION
  Report Type: Spontaneous
  Country: CO (occurrence: CO)
  Receive Date: 20140311
  Receipt Date: 20140428
  Transmission Date: 20141212
  Serious: Yes (Hospitalization, Other)
  Sender: FDA-Public Use
  Company Number: CO-ASTELLAS-2014US002349

PATIENT
  Age: 52 Year
  Sex: Male

DRUGS (11)
  1. PROGRAF XL [Suspect]
     Indication: PRODUCT USED FOR UNKNOWN INDICATION
     Route: 048
  2. PROGRAF XL [Suspect]
     Route: 048
  3. MYCOPHENOLATE SODIUM [Suspect]
     Indication: PRODUCT USED FOR UNKNOWN INDICATION
     Route: 065
  4. TAMSULOSIN [Concomitant]
     Indication: PRODUCT USED FOR UNKNOWN INDICATION
     Dosage: 0.4 MG, UNKNOWN FREQ.
     Route: 048
  5. OMEPRAZOLE [Concomitant]
     Indication: PRODUCT USED FOR UNKNOWN INDICATION
     Route: 048
  6. PREDNISOLONE [Concomitant]
     Indication: PRODUCT USED FOR UNKNOWN INDICATION
     Route: 048
  7. LOSARTAN [Concomitant]
     Indication: PRODUCT USED FOR UNKNOWN INDICATION
     Route: 048
  8. BISOPROLOL FUMARATE [Concomitant]
     Indication: PRODUCT USED FOR UNKNOWN INDICATION
     Route: 048
  9. TRIMETHOPRIM SULFAMETHOXAZOLE [Concomitant]
     Indication: PRODUCT USED FOR UNKNOWN INDICATION
     Route: 065
  10. TRIMETHOPRIM SULFAMETHOXAZOLE [Concomitant]
     Route: 065
  11. CLONIDINE [Concomitant]
     Indication: PRODUCT USED FOR UNKNOWN INDICATION
     Route: 048

REACTIONS (17)
  - Bradyphrenia [Unknown]
  - Aggression [Unknown]
  - Coronary ostial stenosis [Unknown]
  - Cardiac disorder [Unknown]
  - Disorientation [Unknown]
  - Kidney transplant rejection [Unknown]
  - Neurological infection [Unknown]
  - Encephalopathy [Unknown]
  - Delirium [Unknown]
  - Sepsis [Unknown]
  - Diarrhoea [Unknown]
  - Hypertension [Unknown]
  - Neurotoxicity [Unknown]
  - Pyrexia [Unknown]
  - Agitation [Unknown]
  - Cytomegalovirus infection [Unknown]
  - Drug ineffective [Unknown]
